FAERS Safety Report 10012918 (Version 1)
Quarter: 2014Q1

REPORT INFORMATION
  Report Type: Spontaneous
  Country: US (occurrence: US)
  Receive Date: 20140314
  Receipt Date: 20140314
  Transmission Date: 20141002
  Serious: No
  Sender: FDA-Public Use
  Company Number: US-009507513-1403USA005752

PATIENT
  Sex: Female

DRUGS (3)
  1. ZOCOR [Suspect]
     Indication: BLOOD CHOLESTEROL INCREASED
     Dosage: UNK
     Route: 048
     Dates: start: 2009
  2. BENICAR [Concomitant]
     Dosage: 25 MG, ONCE DAILY
  3. GLUCOPHAGE [Concomitant]

REACTIONS (3)
  - Eating disorder [Unknown]
  - Hepatic steatosis [Unknown]
  - Myalgia [Unknown]
